FAERS Safety Report 6928780-1 (Version None)
Quarter: 2010Q3

REPORT INFORMATION
  Report Type: 
  Country: None (occurrence: None)
  Receive Date: 20100806
  Receipt Date: 20090804
  Transmission Date: 20110219
  Serious: No
  Sender: FDA-Public Use
  Company Number: 2009-00936

PATIENT
  Age: 50 Year
  Sex: Female
  Weight: 47.1741 kg

DRUGS (3)
  1. ZICAM COLD REMEDY NASAL GEL [Suspect]
     Dosage: 9 YEARS; 2000 - RECENT
     Dates: start: 20000101
  2. ZICAM COLD REMEDY NASAL GEL [Suspect]
     Dosage: 9 YEARS; 2000 - RECENT
     Dates: start: 20000101
  3. ZICAM COLD REMEDY NASAL GEL [Suspect]
     Dosage: 9 YEARS; 2000 - RECENT
     Dates: start: 20000101

REACTIONS (1)
  - ANOSMIA [None]
